FAERS Safety Report 13794121 (Version 1)
Quarter: 2017Q3

REPORT INFORMATION
  Report Type: Spontaneous
  Country: JP (occurrence: JP)
  Receive Date: 20170726
  Receipt Date: 20170726
  Transmission Date: 20171127
  Serious: Yes (Other)
  Sender: FDA-Public Use
  Company Number: JP-B.I. PHARMACEUTICALS,INC./RIDGEFIELD-2017-NB-000792

PATIENT
  Sex: Female

DRUGS (5)
  1. BI-SIFROL [Suspect]
     Active Substance: PRAMIPEXOLE
     Indication: RESTLESS LEGS SYNDROME
     Route: 048
  2. MERISLON [Concomitant]
     Active Substance: BETAHISTINE MESILATE
     Indication: DIZZINESS
     Route: 048
     Dates: start: 201612
  3. BI-SIFROL [Suspect]
     Active Substance: PRAMIPEXOLE
     Indication: RESTLESS LEGS SYNDROME
     Route: 048
     Dates: start: 20161031, end: 201611
  4. AZUNOL [Concomitant]
     Active Substance: SODIUM GUALENATE
     Indication: OROPHARYNGEAL DISCOMFORT
     Route: 065
  5. BI-SIFROL [Suspect]
     Active Substance: PRAMIPEXOLE
     Indication: RESTLESS LEGS SYNDROME
     Route: 048
     Dates: start: 20161119, end: 201702

REACTIONS (2)
  - Macular fibrosis [Recovering/Resolving]
  - Macular fibrosis [Recovering/Resolving]

NARRATIVE: CASE EVENT DATE: 201612
